FAERS Safety Report 17483182 (Version 1)
Quarter: 2020Q1

REPORT INFORMATION
  Report Type: Spontaneous
  Country: US (occurrence: US)
  Receive Date: 20200302
  Receipt Date: 20200302
  Transmission Date: 20200409
  Serious: No
  Sender: FDA-Public Use
  Company Number: US-PFIZER INC-2020091667

PATIENT
  Age: 56 Year
  Sex: Female

DRUGS (1)
  1. XELJANZ XR [Suspect]
     Active Substance: TOFACITINIB CITRATE
     Dosage: 11 MG, DAILY (11MG TABLET BY MOUTH DAILY)
     Route: 048
     Dates: start: 201911

REACTIONS (8)
  - Joint swelling [Unknown]
  - Chromaturia [Unknown]
  - Peripheral swelling [Unknown]
  - Arthralgia [Unknown]
  - Oropharyngeal pain [Unknown]
  - Decreased appetite [Unknown]
  - Pain in extremity [Unknown]
  - Diarrhoea [Unknown]
